FAERS Safety Report 11336549 (Version 1)
Quarter: 2015Q3

REPORT INFORMATION
  Report Type: Spontaneous
  Country: US (occurrence: US)
  Receive Date: 20150804
  Receipt Date: 20150804
  Transmission Date: 20151125
  Serious: No
  Sender: FDA-Public Use
  Company Number: US-TAKEDA-2014TUS010541

PATIENT
  Age: 2 Year

DRUGS (2)
  1. COLCRYS [Suspect]
     Active Substance: COLCHICINE
     Indication: PYREXIA
     Dosage: HALF TABLET 0.3 MG
  2. COLCRYS [Suspect]
     Active Substance: COLCHICINE
     Dosage: QUARTER OF A 0.6 MG TABLET FOUR TIMES A DAY

REACTIONS (2)
  - Wrong technique in product usage process [Not Recovered/Not Resolved]
  - Diarrhoea [Recovering/Resolving]
